FAERS Safety Report 5489512-X (Version None)
Quarter: 2007Q4

REPORT INFORMATION
  Report Type: 
  Country: None (occurrence: None)
  Receive Date: 20071018
  Receipt Date: 20071016
  Transmission Date: 20080405
  Serious: Yes (Hospitalization)
  Sender: FDA-Public Use
  Company Number: JP-ELI_LILLY_AND_COMPANY-JP200708003813

PATIENT
  Sex: Female
  Weight: 61.2 kg

DRUGS (14)
  1. SOMATROPIN [Suspect]
     Indication: GROWTH HORMONE DEFICIENCY
     Dosage: 0.1 MG, DAILY (1/D)
     Route: 058
     Dates: start: 20060427
  2. SOMATROPIN [Suspect]
     Dosage: 0.1 MG, DAILY (1/D)
     Route: 058
     Dates: start: 20070301
  3. THYRADIN S [Concomitant]
     Indication: SECONDARY HYPOTHYROIDISM
     Dosage: 50 UG, DAILY (1/D)
     Route: 048
     Dates: start: 20020830
  4. DESMOPRESSIN ACETATE [Concomitant]
     Indication: DIABETES INSIPIDUS
     Dosage: 5 UG, DAILY (1/D)
     Route: 002
     Dates: start: 20020830
  5. ZYLORIC [Concomitant]
     Indication: HYPERURICAEMIA
     Dosage: 100 MG, DAILY (1/D)
     Route: 048
     Dates: start: 20020830
  6. ZANTAC [Concomitant]
     Indication: GASTRIC ULCER
     Dosage: 300 MG, DAILY (1/D)
     Route: 048
     Dates: start: 20020830
  7. DESMOPRESSIN ACETATE [Concomitant]
     Dosage: 5 UG, DAILY (1/D)
     Route: 002
     Dates: start: 20020830
  8. CORTONE [Concomitant]
     Indication: SECONDARY ADRENOCORTICAL INSUFFICIENCY
     Dosage: 37.5 MG, DAILY (1/D)
     Route: 048
     Dates: start: 20031219
  9. BONALON [Concomitant]
     Indication: OSTEOPOROSIS
     Dosage: 5 MG, DAILY (1/D)
     Route: 048
     Dates: start: 20031219
  10. NAUZELIN [Concomitant]
     Indication: GASTRIC ULCER
     Dosage: 15 MG, DAILY (1/D)
     Route: 048
     Dates: start: 20051017
  11. TOLEDOMIN [Concomitant]
     Indication: MENTAL DISORDER
     Dosage: 30 MG, DAILY (1/D)
     Route: 048
     Dates: start: 20051017
  12. DEPAS [Concomitant]
     Indication: MENTAL DISORDER
     Dosage: 0.5 MG, DAILY (1/D)
     Route: 048
     Dates: start: 20051017
  13. DEPAKENE [Concomitant]
     Indication: CONVULSION
     Dosage: 600 MG, DAILY (1/D)
     Route: 048
     Dates: start: 20060116
  14. FOIPAN [Concomitant]
     Indication: PANCREATITIS CHRONIC
     Dosage: 600 MG, DAILY (1/D)
     Route: 048
     Dates: start: 20060721

REACTIONS (1)
  - ASTHMA [None]
